FAERS Safety Report 4288521-6 (Version None)
Quarter: 2004Q1

REPORT INFORMATION
  Report Type: 
  Country: None (occurrence: None)
  Receive Date: 20040205
  Receipt Date: 20040121
  Transmission Date: 20041129
  Serious: Yes (Life-Threatening)
  Sender: FDA-Public Use
  Company Number: EWC040137728

PATIENT
  Age: 58 Year
  Sex: Female
  Weight: 68 kg

DRUGS (4)
  1. EVISTA [Suspect]
     Indication: OSTEOPOROSIS
     Dosage: 60 MG/D
     Dates: start: 20030401, end: 20030819
  2. DAFLON (DIOSMIN) [Concomitant]
  3. PREVENCOR (ATORVASTATIN CALCIUM) [Concomitant]
  4. SUTRIL (TORASEMIDE) [Concomitant]

REACTIONS (6)
  - ATAXIA [None]
  - COMA [None]
  - DIZZINESS [None]
  - HYPERTENSION [None]
  - TREMOR [None]
  - VERTIGO [None]
